FAERS Safety Report 6969404-7 (Version None)
Quarter: 2010Q3

REPORT INFORMATION
  Report Type: 
  Country: None (occurrence: None)
  Receive Date: 20100907
  Receipt Date: 20100901
  Transmission Date: 20110219
  Serious: Yes (Hospitalization)
  Sender: FDA-Public Use
  Company Number: US-AMGEN-KDL435540

PATIENT
  Sex: Female

DRUGS (2)
  1. ENBREL [Suspect]
     Indication: RHEUMATOID ARTHRITIS
     Route: 058
     Dates: start: 20090525
  2. METHOTREXATE [Concomitant]

REACTIONS (5)
  - INTERVERTEBRAL DISC PROTRUSION [None]
  - JOINT DISLOCATION [None]
  - MUSCULOSKELETAL STIFFNESS [None]
  - NODULE ON EXTREMITY [None]
  - PAIN IN EXTREMITY [None]
